FAERS Safety Report 15731474 (Version 1)
Quarter: 2018Q4

REPORT INFORMATION
  Report Type: Spontaneous
  Country: US (occurrence: US)
  Receive Date: 20181217
  Receipt Date: 20181217
  Transmission Date: 20190205
  Serious: Yes (Hospitalization)
  Sender: FDA-Public Use
  Company Number: US-TEVA-2018-US-988361

PATIENT
  Sex: Female

DRUGS (2)
  1. AMPHETAMINE W/DEXTROAMPHETAMINE TEVA TABLET [Suspect]
     Active Substance: AMPHETAMINE\DEXTROAMPHETAMINE
     Indication: FATIGUE
     Dosage: 15 MILLIGRAM DAILY;
     Route: 065
     Dates: start: 2006
  2. AMPHETAMINE W/DEXTROAMPHETAMINE TEVA  TABLET [Suspect]
     Active Substance: AMPHETAMINE\DEXTROAMPHETAMINE
     Dosage: 30 MILLIGRAM DAILY;
     Route: 065
     Dates: start: 2012

REACTIONS (3)
  - Withdrawal syndrome [Unknown]
  - Product use in unapproved indication [Unknown]
  - Asthenia [Unknown]
